FAERS Safety Report 20677843 (Version 1)
Quarter: 2022Q2

REPORT INFORMATION
  Report Type: Report from Study
  Country: IT (occurrence: IT)
  Receive Date: 20220406
  Receipt Date: 20220406
  Transmission Date: 20220721
  Serious: Yes (Other)
  Sender: FDA-Public Use
  Company Number: IT-ViiV Healthcare Limited-IT2022GSK050097

PATIENT
  Sex: Male

DRUGS (4)
  1. EMTRICITABINE\TENOFOVIR DISOPROXIL [Suspect]
     Active Substance: EMTRICITABINE\TENOFOVIR DISOPROXIL
     Indication: Antiretroviral therapy
     Dosage: UNK UNK, ONCE A DAY
     Route: 065
  2. DOLUTEGRAVIR [Suspect]
     Active Substance: DOLUTEGRAVIR
     Indication: Antiretroviral therapy
     Dosage: 100 MILLIGRAM, ONCE A DAY (50 MG, TWO TIMES A DAY)
     Route: 065
  3. FOSTEMSAVIR [Suspect]
     Active Substance: FOSTEMSAVIR
     Indication: Antiretroviral therapy
     Dosage: 1200 MILLIGRAM, ONCE A DAY (600 MG, TWO TIMES A DAY)
     Route: 065
  4. DARUNAVIR\RITONAVIR [Suspect]
     Active Substance: DARUNAVIR\RITONAVIR
     Indication: Antiretroviral therapy
     Dosage: UNK, ONCE A DAY (TWO TIMES A DAY)
     Route: 065

REACTIONS (6)
  - Pathogen resistance [Unknown]
  - Drug resistance [Unknown]
  - Virologic failure [Unknown]
  - Treatment noncompliance [Unknown]
  - Blood HIV RNA increased [Recovered/Resolved]
  - Viral mutation identified [Unknown]
